FAERS Safety Report 9265058 (Version 1)
Quarter: 2013Q2

REPORT INFORMATION
  Report Type: Spontaneous
  Country: KE (occurrence: None)
  Receive Date: 20130429
  Receipt Date: 20130429
  Transmission Date: 20140414
  Serious: Yes (Death, Hospitalization)
  Sender: FDA-Public Use
  Company Number: 2013P1004980

PATIENT
  Age: 42 Year
  Sex: Male

DRUGS (4)
  1. CIPROFLOXACIN [Suspect]
     Route: 048
  2. AMODIAQUINE [Suspect]
     Route: 048
  3. ARTESUNATE [Suspect]
     Route: 048
  4. PARACETAMOL [Suspect]
     Route: 048

REACTIONS (6)
  - Overdose [None]
  - Movement disorder [None]
  - Vertigo [None]
  - Dyspnoea [None]
  - Hiccups [None]
  - Intentional drug misuse [None]
